FAERS Safety Report 7608701-9 (Version None)
Quarter: 2011Q3

REPORT INFORMATION
  Report Type: 
  Country: None (occurrence: None)
  Receive Date: 20110713
  Receipt Date: 20110713
  Transmission Date: 20111222
  Serious: Yes (Other)
  Sender: FDA-Public Use
  Company Number: None

PATIENT
  Age: 32 Year
  Sex: Male
  Weight: 72.5755 kg

DRUGS (2)
  1. PROSCAR [Suspect]
     Indication: ANDROGENETIC ALOPECIA
     Dosage: 1 MG QD PO
     Route: 048
     Dates: start: 20020701, end: 20031224
  2. PROSCAR [Suspect]
     Indication: ANDROGENETIC ALOPECIA
     Dosage: 1 MG QD PO
     Route: 048
     Dates: start: 20010901, end: 20020601

REACTIONS (15)
  - CONFUSIONAL STATE [None]
  - MUSCLE TWITCHING [None]
  - TINNITUS [None]
  - PENILE SIZE REDUCED [None]
  - LETHARGY [None]
  - WEIGHT DECREASED [None]
  - HAIR TEXTURE ABNORMAL [None]
  - DISORIENTATION [None]
  - ANXIETY [None]
  - HYPOTHYROIDISM [None]
  - DIZZINESS [None]
  - LIBIDO DECREASED [None]
  - DRY SKIN [None]
  - EJACULATION DISORDER [None]
  - MUSCLE ATROPHY [None]
